FAERS Safety Report 7645102-1 (Version None)
Quarter: 2011Q3

REPORT INFORMATION
  Report Type: 
  Country: None (occurrence: None)
  Receive Date: 20110729
  Receipt Date: 20110719
  Transmission Date: 20111222
  Serious: Yes (Other)
  Sender: FDA-Public Use
  Company Number: PHHY2011IT65795

PATIENT
  Age: 59 Year
  Sex: Female

DRUGS (3)
  1. IMATINIB MESYLATE [Suspect]
     Dosage: 800 MG, DAILY
     Dates: start: 20040801
  2. IMATINIB MESYLATE [Suspect]
     Indication: CHRONIC MYELOID LEUKAEMIA
     Dosage: 400 MG, DAILY
     Dates: start: 20020101
  3. IMATINIB MESYLATE [Suspect]
     Dosage: 600 MG, DAILY
     Dates: start: 20040201

REACTIONS (6)
  - DIARRHOEA [None]
  - THROMBOCYTOSIS [None]
  - FLUID RETENTION [None]
  - DRUG INEFFECTIVE [None]
  - SPLENOMEGALY [None]
  - GENE MUTATION IDENTIFICATION TEST POSITIVE [None]
